FAERS Safety Report 4860776-6 (Version None)
Quarter: 2005Q4

REPORT INFORMATION
  Report Type: 
  Country: None (occurrence: None)
  Receive Date: 20051216
  Receipt Date: 20051206
  Transmission Date: 20060501
  Serious: Yes (Hospitalization)
  Sender: FDA-Public Use
  Company Number: AU200512001166

PATIENT
  Age: 16 Year
  Sex: Female

DRUGS (5)
  1. ZYPREXA [Suspect]
  2. LORAZEPAM [Concomitant]
  3. DIAZEPAM [Concomitant]
  4. MAXOLON [Concomitant]
  5. MOCLOBEMIDE (MOCLOBEMIDE) [Concomitant]

REACTIONS (3)
  - BLOOD CREATINE PHOSPHOKINASE INCREASED [None]
  - NEUROLEPTIC MALIGNANT SYNDROME [None]
  - RENAL IMPAIRMENT [None]
